FAERS Safety Report 4907023-4 (Version None)
Quarter: 2006Q1

REPORT INFORMATION
  Report Type: 
  Country: None (occurrence: None)
  Receive Date: 20060207
  Receipt Date: 20060117
  Transmission Date: 20060701
  Serious: Yes (Hospitalization, Other)
  Sender: FDA-Public Use
  Company Number: US200601002842

PATIENT
  Age: 5 Year
  Sex: Female

DRUGS (6)
  1. HUMULIN R [Suspect]
     Indication: DIABETES MELLITUS
     Dates: start: 19700101
  2. HUMULIN L [Suspect]
     Indication: DIABETES MELLITUS
     Dosage: SEE IMAGE
     Dates: start: 19700101
  3. HUMULIN L [Suspect]
     Indication: DIABETES MELLITUS
     Dosage: SEE IMAGE
     Dates: start: 19700101
  4. HUMALOG [Suspect]
     Indication: DIABETES MELLITUS
     Dates: start: 20050101, end: 20050101
  5. HUMULIN N [Suspect]
     Indication: DIABETES MELLITUS
     Dates: start: 19700101, end: 19700101
  6. LANTUS [Concomitant]

REACTIONS (16)
  - BASEDOW'S DISEASE [None]
  - BLOOD GLUCOSE DECREASED [None]
  - BLOOD GLUCOSE FLUCTUATION [None]
  - BLOOD GLUCOSE INCREASED [None]
  - BLOOD THYROID STIMULATING HORMONE ABNORMAL [None]
  - BREAST CANCER FEMALE [None]
  - DIABETES MELLITUS INADEQUATE CONTROL [None]
  - DIABETES MELLITUS INSULIN-DEPENDENT [None]
  - DRUG ERUPTION [None]
  - HYPERKERATOSIS [None]
  - INJECTION SITE SWELLING [None]
  - LOSS OF CONSCIOUSNESS [None]
  - OEDEMA PERIPHERAL [None]
  - PHARMACEUTICAL PRODUCT COMPLAINT [None]
  - THYROID NEOPLASM [None]
  - VISUAL ACUITY REDUCED [None]
